FAERS Safety Report 23658645 (Version 6)
Quarter: 2024Q3

REPORT INFORMATION
  Report Type: Spontaneous
  Country: CA (occurrence: CA)
  Receive Date: 20240321
  Receipt Date: 20240822
  Transmission Date: 20241016
  Serious: Yes (Death, Hospitalization, Other)
  Sender: NOVARTIS
  Company Number: CA-002147023-NVSC2024CA054774

PATIENT
  Age: 81 Year
  Sex: Male

DRUGS (61)
  1. ENTRESTO [Suspect]
     Active Substance: SACUBITRIL\VALSARTAN
     Indication: Cardiac failure
     Dosage: UNK, QD (SACUBITRIL 48.6 MG/VALSARTAN 51.4 MG)
     Route: 048
     Dates: start: 2022, end: 20231231
  2. ENTRESTO [Suspect]
     Active Substance: SACUBITRIL\VALSARTAN
     Dosage: UNK, BID (SACUBITRIL 24MG/VALSARTAN 25MG)
     Route: 048
     Dates: start: 20240101, end: 20240104
  3. ENTRESTO [Suspect]
     Active Substance: SACUBITRIL\VALSARTAN
     Dosage: UNK, QD (HALF TABLET OF 26-24 MG)
     Route: 048
     Dates: start: 20240112, end: 20240220
  4. ENTRESTO [Suspect]
     Active Substance: SACUBITRIL\VALSARTAN
     Dosage: UNK, QD (DURATION OF REGIMEN:729)
     Route: 048
  5. SPIRONOLACTONE [Suspect]
     Active Substance: SPIRONOLACTONE
     Indication: Product used for unknown indication
     Dosage: 25 MG, QD
     Route: 048
     Dates: start: 20231129, end: 20231227
  6. FUROSEMIDE [Suspect]
     Active Substance: FUROSEMIDE
     Indication: Product used for unknown indication
     Dosage: 40 MG, QD
     Route: 048
     Dates: start: 2008, end: 20231227
  7. FUROSEMIDE [Suspect]
     Active Substance: FUROSEMIDE
     Dosage: 40 MG, QD
     Route: 048
  8. ALDACTONE [Suspect]
     Active Substance: SPIRONOLACTONE
     Indication: Cardiac failure
     Dosage: 25 MG, QD
     Route: 048
     Dates: start: 20231229, end: 20231231
  9. ALDACTONE [Suspect]
     Active Substance: SPIRONOLACTONE
     Dosage: 12.5 MG, QD
     Route: 048
     Dates: start: 20240101, end: 20240112
  10. ATORVASTATIN [Concomitant]
     Active Substance: ATORVASTATIN
     Indication: Product used for unknown indication
     Dosage: 40 MG, QD
     Route: 048
     Dates: start: 2021, end: 20240220
  11. ATORVASTATIN [Concomitant]
     Active Substance: ATORVASTATIN
     Dosage: 40 MG, QD
     Route: 048
  12. BISOPROLOL [Concomitant]
     Active Substance: BISOPROLOL\BISOPROLOL FUMARATE
     Indication: Product used for unknown indication
     Dosage: 3.75 MG, QD
     Route: 048
     Dates: start: 20231004, end: 20231226
  13. BISOPROLOL [Concomitant]
     Active Substance: BISOPROLOL\BISOPROLOL FUMARATE
     Dosage: 2.5 MG, QD
     Route: 048
     Dates: start: 20231227, end: 20240105
  14. BISOPROLOL [Concomitant]
     Active Substance: BISOPROLOL\BISOPROLOL FUMARATE
     Dosage: 3.75 MG, QD
     Route: 048
  15. GLICLAZIDE [Concomitant]
     Active Substance: GLICLAZIDE
     Indication: Product used for unknown indication
     Dosage: UNK
     Route: 048
     Dates: start: 20170701, end: 20240109
  16. GLICLAZIDE [Concomitant]
     Active Substance: GLICLAZIDE
     Dosage: 30 MG, QD
     Route: 048
  17. LEVETIRACETAM [Concomitant]
     Active Substance: LEVETIRACETAM
     Indication: Product used for unknown indication
     Dosage: UNK
     Route: 048
     Dates: start: 2013, end: 20240220
  18. LEVETIRACETAM [Concomitant]
     Active Substance: LEVETIRACETAM
     Dosage: 500 MG, BID
     Route: 048
  19. PREGABALIN [Concomitant]
     Active Substance: PREGABALIN
     Indication: Product used for unknown indication
     Dosage: UNK
     Route: 048
     Dates: start: 1993, end: 20240117
  20. PREGABALIN [Concomitant]
     Active Substance: PREGABALIN
     Dosage: 50 MG, BID
     Route: 048
  21. DULOXETINE [Concomitant]
     Active Substance: DULOXETINE
     Indication: Product used for unknown indication
     Dosage: UNK
     Route: 048
     Dates: start: 1993, end: 20240220
  22. ASPIRIN [Concomitant]
     Active Substance: ASPIRIN
     Indication: Product used for unknown indication
     Dosage: 80 MG, QD
     Route: 048
     Dates: start: 2008, end: 20240220
  23. ASPIRIN [Concomitant]
     Active Substance: ASPIRIN
     Dosage: 80 MG, QD
     Route: 048
  24. COUMADIN [Concomitant]
     Active Substance: WARFARIN SODIUM
     Indication: Atrial fibrillation
     Dosage: 5 MG, QD
     Route: 048
     Dates: start: 2008, end: 20240220
  25. COUMADIN [Concomitant]
     Active Substance: WARFARIN SODIUM
     Dosage: 5 MG, QD
     Route: 048
  26. NOVOGESIC [Concomitant]
     Indication: Product used for unknown indication
     Dosage: UNK
     Route: 048
     Dates: start: 1993, end: 20240107
  27. NOVOGESIC [Concomitant]
     Dosage: 1000 MG, PRN (AS REQUIRED)
     Route: 048
  28. DEXILANT [Concomitant]
     Active Substance: DEXLANSOPRAZOLE
     Indication: Product used for unknown indication
     Dosage: 60 MG, QD (DELAYED RELEASE CAPSULE)
     Route: 048
     Dates: start: 202305, end: 20240220
  29. DEXILANT [Concomitant]
     Active Substance: DEXLANSOPRAZOLE
     Dosage: 60 MG, QD (DELAYED RELEASE)
     Route: 048
  30. DOXYCYCLINE [Concomitant]
     Active Substance: DOXYCYCLINE\DOXYCYCLINE HYCLATE
     Indication: Product used for unknown indication
     Dosage: 100 MG, BID
     Route: 048
     Dates: start: 2021, end: 20240220
  31. DOXYCYCLINE [Concomitant]
     Active Substance: DOXYCYCLINE\DOXYCYCLINE HYCLATE
     Dosage: 100 MG, BID
     Route: 048
  32. FERROUS SULFATE [Concomitant]
     Active Substance: FERROUS SULFATE
     Indication: Product used for unknown indication
     Dosage: UNK
     Route: 048
     Dates: start: 2020, end: 20240220
  33. HYDROMORPHONE HYDROCHLORIDE [Concomitant]
     Active Substance: HYDROMORPHONE HYDROCHLORIDE
     Indication: Product used for unknown indication
     Dosage: UNK
     Route: 048
     Dates: start: 1993, end: 20240107
  34. HYDROMORPHONE HYDROCHLORIDE [Concomitant]
     Active Substance: HYDROMORPHONE HYDROCHLORIDE
     Dosage: 1 MG (AS REQUIRED)
     Route: 048
  35. MYRBETRIQ [Concomitant]
     Active Substance: MIRABEGRON
     Indication: Product used for unknown indication
     Dosage: UNK
     Route: 048
     Dates: start: 2020
  36. MYRBETRIQ [Concomitant]
     Active Substance: MIRABEGRON
     Dosage: 25 MG, QD
     Route: 048
  37. JAMP K20 [Concomitant]
     Indication: Product used for unknown indication
     Dosage: UNK
     Route: 048
     Dates: start: 2008
  38. ZOPICLONE [Concomitant]
     Active Substance: ZOPICLONE
     Indication: Product used for unknown indication
     Dosage: UNK
     Route: 048
     Dates: start: 2021, end: 20240107
  39. ZOPICLONE [Concomitant]
     Active Substance: ZOPICLONE
     Dosage: 7.5 MG (AS REQUIRED)
     Route: 048
  40. DAPAGLIFLOZIN [Concomitant]
     Active Substance: DAPAGLIFLOZIN
     Indication: Product used for unknown indication
     Dosage: UNK
     Route: 048
     Dates: start: 20170701, end: 20240102
  41. RISEDRONATE SODIUM [Concomitant]
     Active Substance: RISEDRONATE SODIUM
     Indication: Product used for unknown indication
     Dosage: UNK
     Route: 048
     Dates: start: 2021
  42. RISEDRONATE SODIUM [Concomitant]
     Active Substance: RISEDRONATE SODIUM
     Dosage: 35 MG, QW
     Route: 048
  43. UNSPECIFIED INGREDIENT [Concomitant]
     Active Substance: UNSPECIFIED INGREDIENT
     Indication: Product used for unknown indication
     Dosage: UNK
     Route: 065
  44. HYDROMORPHONE [Concomitant]
     Active Substance: HYDROMORPHONE
     Indication: Product used for unknown indication
     Dosage: UNK
     Route: 065
     Dates: start: 20231213, end: 20240108
  45. HYDROMORPHONE [Concomitant]
     Active Substance: HYDROMORPHONE
     Dosage: 3 MG, QD
     Route: 065
  46. DAPAGLIFLOZIN PROPANEDIOL [Concomitant]
     Active Substance: DAPAGLIFLOZIN PROPANEDIOL
     Indication: Product used for unknown indication
     Dosage: 10 MG, QD
     Route: 048
  47. FERROUS SULFATE [Concomitant]
     Active Substance: FERROUS SULFATE
     Indication: Product used for unknown indication
     Dosage: 300 MG, QD
     Route: 048
  48. BISOPROLOL FUMARATE [Concomitant]
     Active Substance: BISOPROLOL FUMARATE
     Indication: Product used for unknown indication
     Dosage: 1.25 MG, QD
     Route: 048
     Dates: start: 20240106
  49. HUMULIN R [Concomitant]
     Active Substance: INSULIN HUMAN
     Indication: Product used for unknown indication
     Dosage: UNK
     Route: 065
     Dates: start: 20231227, end: 20240123
  50. FRAGMIN [Concomitant]
     Active Substance: DALTEPARIN SODIUM
     Indication: Product used for unknown indication
     Dosage: 12500 UI, QD
     Route: 065
     Dates: start: 20231227, end: 20231229
  51. NICODERM CQ [Concomitant]
     Active Substance: NICOTINE
     Indication: Product used for unknown indication
     Dosage: 21 MG
     Route: 065
     Dates: start: 20240102, end: 20240123
  52. NICORETTE [Concomitant]
     Active Substance: NICOTINE
     Indication: Product used for unknown indication
     Dosage: 2 MG, WHEN NEEDED
     Route: 065
     Dates: start: 20240102, end: 20240123
  53. HALDOL [Concomitant]
     Active Substance: HALOPERIDOL
     Indication: Product used for unknown indication
     Dosage: 1 MG
     Route: 065
     Dates: start: 20240104, end: 20240107
  54. HALDOL [Concomitant]
     Active Substance: HALOPERIDOL
     Dosage: 0.5 MG
     Route: 065
     Dates: start: 20240108
  55. RISPERDAL [Concomitant]
     Active Substance: RISPERIDONE
     Indication: Product used for unknown indication
     Dosage: 0.125 MG, QD
     Route: 065
     Dates: start: 20240105, end: 20240110
  56. DILAUDID [Concomitant]
     Active Substance: HYDROMORPHONE HYDROCHLORIDE
     Indication: Product used for unknown indication
     Dosage: 0.5 MG, WHEN NEEDED
     Route: 048
     Dates: start: 20240108
  57. METFORMIN [Concomitant]
     Active Substance: METFORMIN HYDROCHLORIDE
     Indication: Product used for unknown indication
     Dosage: 500 MG, BID
     Route: 048
     Dates: start: 20240109, end: 20240220
  58. MELATONIN [Concomitant]
     Active Substance: MELATONIN
     Indication: Product used for unknown indication
     Dosage: 5 MG, QD
     Route: 048
     Dates: start: 20240110
  59. LYRICA [Concomitant]
     Active Substance: PREGABALIN
     Indication: Product used for unknown indication
     Dosage: UNK (25+50 MG,25 MG IN THE  MORNING AND 50 MG AT NIGHT)
     Route: 065
     Dates: start: 20240118, end: 20240220
  60. POTASSIUM CHLORIDE [Concomitant]
     Active Substance: POTASSIUM CHLORIDE
     Indication: Product used for unknown indication
     Dosage: 1500 MG
     Route: 048
  61. DULOXETINE HYDROCHLORIDE [Concomitant]
     Active Substance: DULOXETINE HYDROCHLORIDE
     Indication: Product used for unknown indication
     Dosage: 30 MG, QD
     Route: 048

REACTIONS (13)
  - Cardiac failure [Fatal]
  - Orthostatic hypotension [Fatal]
  - Disease progression [Fatal]
  - Fall [Fatal]
  - Congestive hepatopathy [Not Recovered/Not Resolved]
  - Hypovolaemia [Recovered/Resolved]
  - Respiratory distress [Unknown]
  - C-reactive protein increased [Unknown]
  - Confusional state [Not Recovered/Not Resolved]
  - Hydrocele [Not Recovered/Not Resolved]
  - Acute kidney injury [Recovered/Resolved]
  - Hypokalaemia [Recovered/Resolved]
  - Skin lesion [Unknown]

NARRATIVE: CASE EVENT DATE: 20231128
